FAERS Safety Report 4312466-6 (Version None)
Quarter: 2004Q1

REPORT INFORMATION
  Report Type: 
  Country: None (occurrence: None)
  Receive Date: 20040305
  Receipt Date: 20040210
  Transmission Date: 20041129
  Serious: Yes (Hospitalization)
  Sender: FDA-Public Use
  Company Number: PHBS2004JP02121

PATIENT
  Age: 15 Year
  Sex: Male

DRUGS (4)
  1. VOLTAREN [Suspect]
     Indication: PYREXIA
     Dosage: 25 MG, ONCE/SINGLE
     Route: 054
     Dates: start: 20040208, end: 20040208
  2. ACETAMINOPHEN [Suspect]
     Route: 048
     Dates: start: 20040208, end: 20040208
  3. MEDICON [Concomitant]
     Dosage: 9 DF/DAY
     Route: 048
     Dates: start: 20040207, end: 20040207
  4. DASEN [Concomitant]
     Dosage: 9 DF/DAY
     Route: 048
     Dates: start: 20040207, end: 20040207

REACTIONS (7)
  - CHOKING SENSATION [None]
  - COUGH [None]
  - DRUG INEFFECTIVE [None]
  - DYSPNOEA [None]
  - LYMPHOCYTE STIMULATION TEST POSITIVE [None]
  - MALAISE [None]
  - PNEUMOMEDIASTINUM [None]
